FAERS Safety Report 8837241 (Version 3)
Quarter: 2013Q2

REPORT INFORMATION
  Report Type: Report from Study
  Country: ES (occurrence: ES)
  Receive Date: 20121012
  Receipt Date: 20130509
  Transmission Date: 20140414
  Serious: Yes (Other)
  Sender: FDA-Public Use
  Company Number: ES-ABBOTT-12P-144-0990709-00

PATIENT
  Age: 50 Year
  Sex: Female
  Weight: 51.8 kg

DRUGS (2)
  1. KALETRA TABLETS 200/50 [Suspect]
     Indication: HIV INFECTION
     Dosage: 400/100 MG BID
     Route: 048
     Dates: start: 20020903
  2. LAMIVUDINE [Concomitant]
     Indication: HIV INFECTION
     Route: 048
     Dates: start: 20120315, end: 20120902

REACTIONS (1)
  - Nephropathy toxic [Not Recovered/Not Resolved]
